FAERS Safety Report 17604180 (Version 7)
Quarter: 2020Q3

REPORT INFORMATION
  Report Type: Spontaneous
  Country: US (occurrence: US)
  Receive Date: 20200331
  Receipt Date: 20200804
  Transmission Date: 20201102
  Serious: Yes (Death, Other)
  Sender: FDA-Public Use
  Company Number: US-LEXICON PHARMACEUTICALS, INC-20-1606-00247

PATIENT
  Age: 73 Year
  Sex: Male

DRUGS (4)
  1. XERMELO [Suspect]
     Active Substance: TELOTRISTAT ETHYL
     Indication: CARCINOID SYNDROME
     Dates: start: 20200310
  2. XERMELO [Suspect]
     Active Substance: TELOTRISTAT ETHYL
     Dates: start: 20200330
  3. SANDOSTATIN [Concomitant]
     Active Substance: OCTREOTIDE ACETATE
  4. XERMELO [Suspect]
     Active Substance: TELOTRISTAT ETHYL

REACTIONS (10)
  - Red blood cell count decreased [Unknown]
  - Constipation [Not Recovered/Not Resolved]
  - Death [Fatal]
  - Hospice care [Unknown]
  - Atrial fibrillation [Unknown]
  - Malaise [Unknown]
  - Pleural effusion [Unknown]
  - Blood creatinine increased [Unknown]
  - Haemoglobin decreased [Unknown]
  - Hepatic enzyme increased [Unknown]
